FAERS Safety Report 20691858 (Version 9)
Quarter: 2022Q3

REPORT INFORMATION
  Report Type: Report from Study
  Country: US (occurrence: US)
  Receive Date: 20220408
  Receipt Date: 20220805
  Transmission Date: 20221026
  Serious: Yes (Disabling)
  Sender: FDA-Public Use
  Company Number: US-HORIZON THERAPEUTICS-HZN-2022-002505

PATIENT

DRUGS (24)
  1. TEPROTUMUMAB-TRBW [Suspect]
     Active Substance: TEPROTUMUMAB-TRBW
     Indication: Endocrine ophthalmopathy
     Dosage: 921 MG (10-20 MG/KG, EVERY 3 WEEKS)
     Route: 042
     Dates: start: 20211013, end: 20211013
  2. TEPROTUMUMAB-TRBW [Suspect]
     Active Substance: TEPROTUMUMAB-TRBW
     Dosage: 1842 MG
     Route: 042
     Dates: start: 20211103, end: 20211103
  3. TEPROTUMUMAB-TRBW [Suspect]
     Active Substance: TEPROTUMUMAB-TRBW
     Dosage: 1842 MG
     Route: 042
     Dates: start: 20211201, end: 20211201
  4. TEPROTUMUMAB-TRBW [Suspect]
     Active Substance: TEPROTUMUMAB-TRBW
     Dosage: 1842 MG
     Route: 042
     Dates: start: 20211214, end: 20211214
  5. TEPROTUMUMAB-TRBW [Suspect]
     Active Substance: TEPROTUMUMAB-TRBW
     Dosage: 1748 MG
     Route: 042
     Dates: start: 20220111, end: 20220111
  6. TEPROTUMUMAB-TRBW [Suspect]
     Active Substance: TEPROTUMUMAB-TRBW
     Dosage: 1748 MG
     Route: 042
     Dates: start: 20220128, end: 20220128
  7. TEPROTUMUMAB-TRBW [Suspect]
     Active Substance: TEPROTUMUMAB-TRBW
     Dosage: 1748 MG
     Route: 042
     Dates: start: 20220228, end: 20220228
  8. TEPROTUMUMAB-TRBW [Suspect]
     Active Substance: TEPROTUMUMAB-TRBW
     Dosage: 1748 MG
     Route: 042
     Dates: start: 20220311, end: 20220311
  9. TEPROTUMUMAB-TRBW [Suspect]
     Active Substance: TEPROTUMUMAB-TRBW
     Dosage: 828 MG
     Route: 042
     Dates: start: 20220331, end: 20220331
  10. ADIPEX-P [Concomitant]
     Active Substance: PHENTERMINE HYDROCHLORIDE
     Indication: Weight increased
     Dosage: 37.5 MG, QD
     Route: 048
     Dates: start: 20210729
  11. TAPAZOLE [Concomitant]
     Active Substance: METHIMAZOLE
     Indication: Endocrine ophthalmopathy
     Dosage: 12.5 MG, QD
     Route: 048
     Dates: start: 20210827
  12. VITAMIN C [Concomitant]
     Active Substance: ASCORBIC ACID
     Indication: Supplementation therapy
     Dosage: 1000 MG, QD
     Route: 048
     Dates: start: 2021
  13. VITAMIN C [Concomitant]
     Active Substance: ASCORBIC ACID
     Indication: Antiviral prophylaxis
  14. CHOLECALCIFEROL [Concomitant]
     Active Substance: CHOLECALCIFEROL
     Indication: Antiviral prophylaxis
     Dosage: 1000 IU, QD
     Route: 048
     Dates: start: 2021
  15. CHOLECALCIFEROL [Concomitant]
     Active Substance: CHOLECALCIFEROL
     Indication: Supplementation therapy
  16. ACETAMINOPHEN [Concomitant]
     Active Substance: ACETAMINOPHEN
     Indication: Headache
     Dosage: 500 MG, PRN
     Route: 048
     Dates: start: 20211201
  17. SYSTANE LUBRICANT [Concomitant]
     Active Substance: POLYETHYLENE GLYCOL 400\PROPYLENE GLYCOL
     Indication: Dry eye
     Dosage: 0.7 ML, PRN
     Route: 061
     Dates: start: 2021
  18. PROHANCE [Concomitant]
     Active Substance: GADOTERIDOL
     Indication: Dizziness
     Dosage: 10 ML, SINGLE
     Route: 065
     Dates: start: 20220330
  19. PROHANCE [Concomitant]
     Active Substance: GADOTERIDOL
     Indication: Conductive deafness
  20. PROHANCE [Concomitant]
     Active Substance: GADOTERIDOL
     Indication: Magnetic resonance imaging
  21. PROHANCE [Concomitant]
     Active Substance: GADOTERIDOL
     Indication: Computerised tomogram
  22. VIBRAMYCIN [DOXYCYCLINE HYCLATE] [Concomitant]
     Indication: Sinusitis
     Dosage: 100 MG, BID
     Route: 048
     Dates: start: 20220404, end: 20220418
  23. TOPAMAX [Concomitant]
     Active Substance: TOPIRAMATE
     Indication: Headache
     Dosage: 25 MG, QD
     Route: 048
     Dates: start: 20220425
  24. COCONUT OIL [Concomitant]
     Active Substance: COCONUT OIL
     Indication: Dry skin
     Dosage: 50 G, PRN
     Route: 061
     Dates: start: 20211105

REACTIONS (1)
  - Conductive deafness [Not Recovered/Not Resolved]

NARRATIVE: CASE EVENT DATE: 20211214
